FAERS Safety Report 8502292-6 (Version None)
Quarter: 2012Q3

REPORT INFORMATION
  Report Type: 
  Country: None (occurrence: None)
  Receive Date: 20120711
  Receipt Date: 20111025
  Transmission Date: 20120928
  Serious: No
  Sender: FDA-Public Use
  Company Number: US-COVIDIEN/TYCO HEALTHCARE/MALLINCKRODT-T201102431

PATIENT

DRUGS (1)
  1. OXYCODONE HCL [Suspect]

REACTIONS (3)
  - MALAISE [None]
  - DRUG INEFFECTIVE [None]
  - DYSGEUSIA [None]
